FAERS Safety Report 7880471-9 (Version None)
Quarter: 2011Q4

REPORT INFORMATION
  Report Type: 
  Country: None (occurrence: None)
  Receive Date: 20111101
  Receipt Date: 20111019
  Transmission Date: 20120403
  Serious: Yes (Death, Hospitalization, Other)
  Sender: FDA-Public Use
  Company Number: PHFR2011IE01080

PATIENT
  Sex: Male

DRUGS (9)
  1. CLOZARIL [Suspect]
     Dosage: 50 MG/DAY
     Route: 048
     Dates: start: 20091001
  2. VESITIRM [Concomitant]
     Dosage: 10 MG, QD
     Route: 048
  3. CITALOPRAM HYDROBROMIDE [Concomitant]
     Dosage: 20 MG, MANE
     Route: 048
  4. GLUCOPHAGE [Concomitant]
     Dosage: 500 MG, BID
     Route: 048
  5. RAMIPRIL [Concomitant]
     Dosage: 2.5 MG/DAY
     Route: 048
  6. CLOZARIL [Suspect]
     Indication: SCHIZOPHRENIA
     Dosage: 200 MG MANE, 400 MG NOCTE /DAY
     Route: 048
     Dates: start: 19950802
  7. ASPIRIN [Concomitant]
     Dosage: 75 MG/DAY
     Route: 048
  8. OMNEXEL [Concomitant]
     Dosage: 400 UG/DAY
     Route: 065
  9. LIPITOR [Concomitant]
     Dosage: 20 MG/DAY
     Route: 048

REACTIONS (6)
  - HYPERCHOLESTEROLAEMIA [None]
  - HYPERTENSION [None]
  - LIVER FUNCTION TEST ABNORMAL [None]
  - HEPATIC NEOPLASM MALIGNANT [None]
  - ALPHA 1 FOETOPROTEIN INCREASED [None]
  - OBESITY [None]
